FAERS Safety Report 4675642-9 (Version None)
Quarter: 2005Q2

REPORT INFORMATION
  Report Type: 
  Country: None (occurrence: None)
  Receive Date: 20050527
  Receipt Date: 20050516
  Transmission Date: 20051028
  Serious: Yes (Other)
  Sender: FDA-Public Use
  Company Number: US-NOVOPROD-240606

PATIENT
  Age: 73 Year
  Sex: Female
  Weight: 79 kg

DRUGS (6)
  1. NOVOLOG MIX 70/30 [Suspect]
     Indication: INSULIN-REQUIRING TYPE II DIABETES MELLITUS
     Dosage: 25 IU, QD
     Route: 058
     Dates: start: 20041001
  2. NOVOLOG MIX 70/30 [Suspect]
     Dosage: 25 IU, QD
     Route: 058
     Dates: start: 20041001
  3. HYDROCHLOROTHIAZIDE [Concomitant]
     Indication: FLUID RETENTION
  4. ZESTRIL [Concomitant]
     Indication: HYPERTENSION
  5. SINEMET [Concomitant]
     Indication: PARKINSON'S DISEASE
  6. REQUIP [Concomitant]
     Indication: PARKINSON'S DISEASE

REACTIONS (3)
  - ABDOMINAL PAIN [None]
  - GASTRIC ULCER [None]
  - HIATUS HERNIA [None]
